FAERS Safety Report 4943834-7 (Version None)
Quarter: 2006Q1

REPORT INFORMATION
  Report Type: 
  Country: None (occurrence: None)
  Receive Date: 20060310
  Receipt Date: 20060306
  Transmission Date: 20060701
  Serious: Yes (Death)
  Sender: FDA-Public Use
  Company Number: CTP20060008

PATIENT
  Age: 22 Year
  Sex: Female

DRUGS (1)
  1. CITALOPRAM HYDROBROMIDE [Suspect]
     Indication: DEPRESSION
     Dosage: 2880 MG PO
     Route: 048
     Dates: start: 20040101, end: 20040101

REACTIONS (9)
  - BODY TEMPERATURE INCREASED [None]
  - BRAIN OEDEMA [None]
  - CARDIAC ARREST [None]
  - CONVULSION [None]
  - DRUG TOXICITY [None]
  - HYPOVENTILATION [None]
  - INTENTIONAL OVERDOSE [None]
  - MULTI-ORGAN DISORDER [None]
  - MUSCLE RIGIDITY [None]
